FAERS Safety Report 7117261-0 (Version None)
Quarter: 2010Q4

REPORT INFORMATION
  Report Type: 
  Country: None (occurrence: None)
  Receive Date: 20101122
  Receipt Date: 20101109
  Transmission Date: 20110411
  Serious: No
  Sender: FDA-Public Use
  Company Number: DE-ABBOTT-10P-062-0684030-00

PATIENT
  Sex: Male

DRUGS (2)
  1. ENANTONE MONATSDEPOT [Suspect]
     Indication: PROSTATE CANCER
     Route: 058
  2. TRENANTONE [Suspect]
     Indication: PROSTATE CANCER
     Route: 058
     Dates: end: 20090501

REACTIONS (2)
  - ARTERIOSCLEROSIS CORONARY ARTERY [None]
  - EXERCISE TOLERANCE DECREASED [None]
